FAERS Safety Report 18220677 (Version 1)
Quarter: 2020Q3

REPORT INFORMATION
  Report Type: Spontaneous
  Country: FR (occurrence: FR)
  Receive Date: 20200902
  Receipt Date: 20200902
  Transmission Date: 20201103
  Serious: Yes (Other)
  Sender: FDA-Public Use
  Company Number: FR-AUROBINDO-AUR-APL-2020-045734

PATIENT
  Sex: Female

DRUGS (5)
  1. TAXOL [Suspect]
     Active Substance: PACLITAXEL
     Indication: SQUAMOUS CELL CARCINOMA OF THE CERVIX
     Dosage: UNK
     Route: 065
     Dates: start: 201907
  2. CARBOPLATIN. [Suspect]
     Active Substance: CARBOPLATIN
     Dosage: UNK, 2ND L (LINE)
     Route: 065
     Dates: start: 201909
  3. LEUCOVORIN. [Suspect]
     Active Substance: LEUCOVORIN
     Indication: SQUAMOUS CELL CARCINOMA OF THE CERVIX
     Dosage: UNK
     Route: 065
     Dates: start: 201909
  4. CARBOPLATIN. [Suspect]
     Active Substance: CARBOPLATIN
     Indication: SQUAMOUS CELL CARCINOMA OF THE CERVIX
     Dosage: UNK
     Route: 065
     Dates: start: 201907
  5. 5?FLUOROURACIL [Suspect]
     Active Substance: FLUOROURACIL
     Indication: SQUAMOUS CELL CARCINOMA OF THE CERVIX
     Dosage: UNK
     Route: 065
     Dates: start: 201909

REACTIONS (1)
  - Drug ineffective [Unknown]

NARRATIVE: CASE EVENT DATE: 201907
